FAERS Safety Report 5517471-X (Version None)
Quarter: 2007Q4

REPORT INFORMATION
  Report Type: 
  Country: None (occurrence: None)
  Receive Date: 20071114
  Receipt Date: 20071102
  Transmission Date: 20080405
  Serious: Yes (Other)
  Sender: FDA-Public Use
  Company Number: CH-WYE-G00488607

PATIENT
  Age: 44 Year
  Sex: Male
  Weight: 85 kg

DRUGS (4)
  1. EFFEXOR [Suspect]
     Indication: DEPRESSION
     Route: 048
     Dates: start: 20060701, end: 20070101
  2. EFFEXOR [Suspect]
     Indication: PERSONALITY DISORDER
     Dosage: 225 MG AND TAPERING OFF
     Dates: start: 20070101, end: 20070801
  3. EFFEXOR [Suspect]
     Route: 048
     Dates: start: 20070801
  4. EFFEXOR [Suspect]
     Route: 048
     Dates: start: 20070101, end: 20070101

REACTIONS (16)
  - ALTERED STATE OF CONSCIOUSNESS [None]
  - ATAXIA [None]
  - BRADYPHRENIA [None]
  - COGWHEEL RIGIDITY [None]
  - DISTURBANCE IN ATTENTION [None]
  - DRUG WITHDRAWAL SYNDROME [None]
  - DYSAESTHESIA [None]
  - DYSARTHRIA [None]
  - FATIGUE [None]
  - HALLUCINATION, VISUAL [None]
  - HYPERHIDROSIS [None]
  - MUSCLE RIGIDITY [None]
  - MUSCLE TWITCHING [None]
  - TREMOR [None]
  - VERTIGO [None]
  - VOMITING [None]
